FAERS Safety Report 4716694-7 (Version None)
Quarter: 2005Q3

REPORT INFORMATION
  Report Type: 
  Country: None (occurrence: None)
  Receive Date: 20050714
  Receipt Date: 20050701
  Transmission Date: 20060218
  Serious: Yes (Other)
  Sender: FDA-Public Use
  Company Number: 2005071824

PATIENT
  Age: 30 Year
  Sex: Male

DRUGS (4)
  1. VFEND [Suspect]
     Indication: MENINGITIS COCCIDIOIDES
     Dosage: 800 MG (400 MG, 2 IN 1 D), ORAL
     Route: 048
     Dates: start: 20040926, end: 20050216
  2. VFEND [Suspect]
     Indication: MENINGITIS COCCIDIOIDES
     Dosage: 800 MG (400 MG, 2 IN 1 D), ORAL
     Route: 048
     Dates: start: 20040921
  3. CETIRIZINE HCL [Concomitant]
  4. NASONEX [Concomitant]

REACTIONS (4)
  - ASTHENIA [None]
  - IMPAIRED WORK ABILITY [None]
  - NAUSEA [None]
  - PERIPHERAL SENSORIMOTOR NEUROPATHY [None]
